FAERS Safety Report 13929720 (Version 1)
Quarter: 2017Q3

REPORT INFORMATION
  Report Type: Spontaneous
  Country: US (occurrence: US)
  Receive Date: 20170901
  Receipt Date: 20170901
  Transmission Date: 20171127
  Serious: Yes (Other)
  Sender: FDA-Public Use
  Company Number: US-SUN PHARMACEUTICAL INDUSTRIES LTD-2016US-111593

PATIENT
  Age: 11 Year
  Sex: Female

DRUGS (4)
  1. QUINIDINE [Suspect]
     Active Substance: QUINIDINE
     Dosage: 40 MG/KG, DAILY
     Route: 065
  2. QUINIDINE [Suspect]
     Active Substance: QUINIDINE
     Dosage: 54.2 MG/KG, DAILY
     Route: 065
  3. QUINIDINE [Suspect]
     Active Substance: QUINIDINE
     Indication: EPILEPSY
     Dosage: 11 MG/KG, DAILY
     Route: 065
  4. QUINIDINE [Suspect]
     Active Substance: QUINIDINE
     Dosage: 34 MG/KG, DAILY
     Route: 065

REACTIONS (2)
  - Electrocardiogram QT prolonged [Unknown]
  - Off label use [Unknown]
